FAERS Safety Report 24997370 (Version 1)
Quarter: 2025Q1

REPORT INFORMATION
  Report Type: Report from Study
  Country: IE (occurrence: IE)
  Receive Date: 20250222
  Receipt Date: 20250222
  Transmission Date: 20250409
  Serious: Yes (Hospitalization, Other)
  Sender: ALEXION PHARMACEUTICALS
  Company Number: IE-ASTRAZENECA-202502EEA014248IE

PATIENT

DRUGS (13)
  1. BENRALIZUMAB [Suspect]
     Active Substance: BENRALIZUMAB
     Indication: Asthma
  2. BENRALIZUMAB [Suspect]
     Active Substance: BENRALIZUMAB
  3. BENRALIZUMAB [Suspect]
     Active Substance: BENRALIZUMAB
  4. BENRALIZUMAB [Suspect]
     Active Substance: BENRALIZUMAB
  5. BENRALIZUMAB [Suspect]
     Active Substance: BENRALIZUMAB
  6. VENTOLIN [Concomitant]
     Active Substance: ALBUTEROL SULFATE
  7. ALVESCO [Concomitant]
     Active Substance: CICLESONIDE
     Dosage: 320 MICROGRAM, BID
  8. OLODATEROL HYDROCHLORIDE\TIOTROPIUM BROMIDE MONOHYDRATE [Concomitant]
     Active Substance: OLODATEROL HYDROCHLORIDE\TIOTROPIUM BROMIDE MONOHYDRATE
  9. DYMISTA [Concomitant]
     Active Substance: AZELASTINE HYDROCHLORIDE\FLUTICASONE PROPIONATE
     Dosage: 137 MICROGRAM, BID
     Route: 050
  10. AZITHROMYCIN [Concomitant]
     Active Substance: AZITHROMYCIN
     Dosage: 250 MICROGRAM, BID
  11. PREDNISOLONE [Concomitant]
     Active Substance: PREDNISOLONE
     Dosage: 9 MILLIGRAM, QD
     Route: 050
  12. BUTRANS [Concomitant]
     Active Substance: BUPRENORPHINE
     Dosage: 10 MILLIGRAM, QD
     Route: 050
  13. PULMICORT TURBUHALER [Concomitant]
     Active Substance: BUDESONIDE
     Route: 050

REACTIONS (3)
  - Lower respiratory tract infection [Unknown]
  - Pneumonia [Unknown]
  - Inappropriate schedule of product administration [Unknown]
